FAERS Safety Report 4751655-3 (Version None)
Quarter: 2005Q3

REPORT INFORMATION
  Report Type: 
  Country: None (occurrence: None)
  Receive Date: 20050823
  Receipt Date: 20050823
  Transmission Date: 20060218
  Serious: Yes (Hospitalization)
  Sender: FDA-Public Use
  Company Number: None

PATIENT
  Age: 32 Year
  Sex: Female
  Weight: 81.1939 kg

DRUGS (12)
  1. XELODA [Suspect]
     Indication: BREAST CANCER
     Dosage: 2000 MG BID PO
     Route: 048
     Dates: start: 20050812, end: 20050822
  2. DOCETAXEL 75 MG/M2 [Suspect]
     Indication: BREAST CANCER
     Dosage: 152MG DAY 1 OF 3 WEEKS IV DRIP
     Route: 041
     Dates: start: 20050812, end: 20050812
  3. XELODA [Concomitant]
  4. PAXIL [Concomitant]
  5. AMBIEN [Concomitant]
  6. AMITRIPYTYLINE HYDOCHLORIDE CEFPIME [Concomitant]
  7. VANCOMYCIN [Concomitant]
  8. TORADOL [Concomitant]
  9. ZOFRAN [Concomitant]
  10. PHENERGAN [Concomitant]
  11. NORAML SALINE FLUDIS [Concomitant]
  12. NYSTATIN [Concomitant]

REACTIONS (7)
  - CANDIDIASIS [None]
  - HAEMATOCRIT DECREASED [None]
  - HAEMOGLOBIN DECREASED [None]
  - HEADACHE [None]
  - NEUTROPENIA [None]
  - PYREXIA [None]
  - WHITE BLOOD CELL COUNT DECREASED [None]
